FAERS Safety Report 12081726 (Version 1)
Quarter: 2016Q1

REPORT INFORMATION
  Report Type: Spontaneous
  Country: US (occurrence: US)
  Receive Date: 20160216
  Receipt Date: 20160216
  Transmission Date: 20160526
  Serious: No
  Sender: FDA-Public Use
  Company Number: US-PERRIGO-15US011523

PATIENT
  Age: 9 Year
  Sex: Female
  Weight: 45.35 kg

DRUGS (4)
  1. DIBROMM DM PE LIQUID [Concomitant]
     Indication: NASOPHARYNGITIS
     Dosage: 10 ML, TID
     Route: 048
     Dates: start: 20151027, end: 20151030
  2. IBUPROFEN. [Suspect]
     Active Substance: IBUPROFEN
     Indication: NASOPHARYNGITIS
     Dosage: 200 MG, TID, PRN
     Route: 048
  3. IBUPROFEN. [Suspect]
     Active Substance: IBUPROFEN
     Indication: PYREXIA
  4. DRUGS FOR CONSTIPATION [Concomitant]
     Active Substance: UNSPECIFIED INGREDIENT
     Indication: CONSTIPATION
     Dosage: UNK
     Route: 065
     Dates: start: 2014

REACTIONS (1)
  - Drug ineffective [Unknown]

NARRATIVE: CASE EVENT DATE: 20151027
